FAERS Safety Report 4925252-0 (Version None)
Quarter: 2006Q1

REPORT INFORMATION
  Report Type: 
  Country: None (occurrence: None)
  Receive Date: 20060228
  Receipt Date: 20050926
  Transmission Date: 20060701
  Serious: Yes (Hospitalization, Other)
  Sender: FDA-Public Use
  Company Number: PHEH2005US10694

PATIENT
  Age: 63 Year
  Sex: Female
  Weight: 50.793 kg

DRUGS (18)
  1. AREDIA [Suspect]
     Indication: METASTASES TO BONE
     Dosage: 90 MG, QMO
     Route: 042
     Dates: end: 20050131
  2. ZOMETA [Suspect]
     Dosage: 4 MG, QMO
     Route: 042
     Dates: start: 20050131, end: 20050531
  3. ATUSS DM [Concomitant]
  4. VALIUM [Concomitant]
     Dosage: 5 MG, Q6H
  5. MEPERGAN FORTIS [Concomitant]
     Dosage: UNK, PRN
  6. BENADRYL [Concomitant]
     Route: 042
  7. ZOFRAN [Concomitant]
     Dosage: 8 MG, PRN
  8. ALOXI [Concomitant]
     Dosage: 0.25 UNK, UNK
     Dates: start: 20041227, end: 20050117
  9. HERCEPTIN [Concomitant]
     Indication: METASTATIC NEOPLASM
     Dosage: 85 MG, UNK
     Route: 042
     Dates: start: 20030101
  10. TAXOTERE [Concomitant]
     Dosage: UNK, UNK
     Dates: end: 20050131
  11. FASLODEX [Concomitant]
     Dosage: 250 UNK, UNK
  12. LEVAQUIN [Concomitant]
     Indication: COUGH
  13. TEGRETOL [Concomitant]
     Dosage: 200 MG, BID
     Dates: start: 20050101
  14. AROMASIN [Concomitant]
     Dates: end: 20030101
  15. PHENERGAN [Concomitant]
     Indication: NAUSEA
     Dosage: 25 MG, PRN
  16. DURAGESIC-100 [Concomitant]
     Indication: PAIN
     Dosage: 50 MCH/HR
     Dates: start: 20030101
  17. HEXAMETHYLMELAMINE [Concomitant]
  18. PROCRIT [Concomitant]

REACTIONS (41)
  - ABDOMINAL PAIN [None]
  - ACTINOMYCOSIS [None]
  - ANOREXIA [None]
  - AXILLARY MASS [None]
  - BONE DEBRIDEMENT [None]
  - BONE DISORDER [None]
  - CATARACT OPERATION [None]
  - CHEST PAIN [None]
  - COUGH [None]
  - DEHYDRATION [None]
  - DIZZINESS [None]
  - DYSARTHRIA [None]
  - DYSPEPSIA [None]
  - DYSPHAGIA [None]
  - DYSPNOEA [None]
  - FACIAL BONES FRACTURE [None]
  - FALL [None]
  - FISTULA [None]
  - GASTROENTERITIS VIRAL [None]
  - GOITRE [None]
  - HEADACHE [None]
  - HEMIPARESIS [None]
  - HYPERTENSION [None]
  - HYPOAESTHESIA [None]
  - INJECTION SITE NODULE [None]
  - INTERVERTEBRAL DISC DISORDER [None]
  - LACUNAR INFARCTION [None]
  - LYMPH NODE PALPABLE [None]
  - MALIGNANT NEOPLASM PROGRESSION [None]
  - MODIFIED RADICAL MASTECTOMY [None]
  - MOUTH ULCERATION [None]
  - NAUSEA [None]
  - OESOPHAGEAL PAIN [None]
  - ORAL CANDIDIASIS [None]
  - OSTEONECROSIS [None]
  - PAIN IN JAW [None]
  - RASH [None]
  - RETCHING [None]
  - SEQUESTRECTOMY [None]
  - VOMITING [None]
  - WEIGHT DECREASED [None]
